FAERS Safety Report 17591612 (Version 1)
Quarter: 2020Q1

REPORT INFORMATION
  Report Type: Spontaneous
  Country: US (occurrence: US)
  Receive Date: 20200327
  Receipt Date: 20200327
  Transmission Date: 20200409
  Serious: Yes (Hospitalization)
  Sender: FDA-Public Use
  Company Number: None

PATIENT
  Age: 72 Year
  Sex: Female
  Weight: 54.1 kg

DRUGS (2)
  1. OXCARBAZEPINE ORAL SUSPENSION, 300 MG PER 5 ML SANDOZ [Suspect]
     Active Substance: OXCARBAZEPINE
     Indication: SEIZURE
     Route: 048
     Dates: start: 20191213, end: 20191219
  2. SODIUM CHLORIDE TABLET [Concomitant]
     Dates: start: 20191219, end: 20191221

REACTIONS (1)
  - Hyponatraemia [None]

NARRATIVE: CASE EVENT DATE: 20191218
